FAERS Safety Report 4355489-3 (Version None)
Quarter: 2004Q2

REPORT INFORMATION
  Report Type: 
  Country: None (occurrence: None)
  Receive Date: 20040505
  Receipt Date: 20030723
  Transmission Date: 20050107
  Serious: Yes (Other)
  Sender: FDA-Public Use
  Company Number: PERD20030007

PATIENT
  Age: 55 Year
  Sex: Male

DRUGS (4)
  1. PERCODAN [Suspect]
     Indication: PAIN
     Dates: start: 19810101
  2. STADOL [Suspect]
     Indication: PAIN
     Dates: start: 19810101
  3. LORCET-HD [Suspect]
     Indication: PAIN
     Dates: start: 19810101
  4. DILAUDID [Suspect]
     Indication: PAIN
     Dates: start: 19810101

REACTIONS (2)
  - DEPENDENCE [None]
  - DRUG WITHDRAWAL SYNDROME [None]
